FAERS Safety Report 6783729-X (Version None)
Quarter: 2010Q2

REPORT INFORMATION
  Report Type: 
  Country: None (occurrence: None)
  Receive Date: 20100622
  Receipt Date: 20100612
  Transmission Date: 20101027
  Serious: Yes (Other)
  Sender: FDA-Public Use
  Company Number: US-SANOFI-AVENTIS-2010SA034428

PATIENT
  Age: 84 Year
  Sex: Male

DRUGS (3)
  1. OPTICLICK [Suspect]
     Indication: TYPE 2 DIABETES MELLITUS
     Dates: start: 20091001
  2. LANTUS [Suspect]
     Indication: TYPE 2 DIABETES MELLITUS
     Dosage: DOSE:60 UNIT(S)
     Route: 058
  3. LANTUS [Suspect]
     Route: 058
     Dates: start: 20091001

REACTIONS (5)
  - CORONARY ARTERY OCCLUSION [None]
  - COUGH [None]
  - INJECTION SITE HAEMORRHAGE [None]
  - PHARYNGEAL DISORDER [None]
  - VISUAL ACUITY REDUCED [None]
